FAERS Safety Report 9419059 (Version 3)
Quarter: 2013Q3

REPORT INFORMATION
  Report Type: Spontaneous
  Country: GB (occurrence: GB)
  Receive Date: 20130725
  Receipt Date: 20130927
  Transmission Date: 20140515
  Serious: Yes (Death, Hospitalization, Other)
  Sender: FDA-Public Use
  Company Number: PHFR2013GB004214

PATIENT
  Sex: Female

DRUGS (6)
  1. CLOZARIL [Suspect]
     Indication: SCHIZOPHRENIA
     Dosage: 200 MG DAILY
     Route: 048
     Dates: start: 20101104
  2. ZOPICLONE [Concomitant]
     Indication: INSOMNIA
     Dosage: 3.75 MG,DAILY
     Route: 048
     Dates: start: 20130409
  3. AMITRIPTYLINE [Concomitant]
     Indication: DEPRESSION
     Dosage: 50 MG, DAILY
     Route: 048
     Dates: start: 2006
  4. OMEPRAZOLE [Concomitant]
     Indication: GASTROOESOPHAGEAL REFLUX DISEASE
     Dosage: 20 MG, UNK
     Route: 048
     Dates: start: 2011
  5. FERROUS SULPHATE [Concomitant]
     Indication: IRON DEFICIENCY
     Dosage: 200 MG, DAILY BID
     Route: 048
     Dates: start: 2011
  6. LORAZEPAM [Concomitant]
     Indication: ANXIETY
     Dosage: 1 MG,DAILY  PRN

REACTIONS (2)
  - Death [Fatal]
  - Circulatory collapse [Unknown]
